FAERS Safety Report 17729668 (Version 1)
Quarter: 2020Q2

REPORT INFORMATION
  Report Type: Spontaneous
  Country: FR (occurrence: FR)
  Receive Date: 20200430
  Receipt Date: 20200430
  Transmission Date: 20200714
  Serious: Yes (Hospitalization, Other)
  Sender: FDA-Public Use
  Company Number: FR-PFIZER INC-2020171152

PATIENT
  Age: 24 Year
  Sex: Male

DRUGS (4)
  1. IBUPROFEN. [Suspect]
     Active Substance: IBUPROFEN
     Indication: TOOTH ABSCESS
     Dosage: 3 DF, 1X/DAY
     Route: 048
     Dates: start: 20200120, end: 20200122
  2. PARACETAMOL [Suspect]
     Active Substance: ACETAMINOPHEN
     Indication: TOOTH ABSCESS
     Dosage: 1 DF, 1X/DAY
     Route: 048
     Dates: start: 20200126, end: 20200126
  3. AMOXICILLINE [Suspect]
     Active Substance: AMOXICILLIN
     Indication: TOOTH ABSCESS
     Dosage: 1 DF, 1X/DAY
     Route: 048
     Dates: start: 20200115, end: 20200122
  4. METRONIDAZOLE. [Suspect]
     Active Substance: METRONIDAZOLE
     Indication: TOOTH ABSCESS
     Dosage: 1 DF, 1X/DAY
     Route: 048
     Dates: start: 20200115, end: 20200122

REACTIONS (2)
  - Acute kidney injury [Recovering/Resolving]
  - Hepatitis [Recovered/Resolved]

NARRATIVE: CASE EVENT DATE: 20200129
